FAERS Safety Report 11740954 (Version 1)
Quarter: 2015Q4

REPORT INFORMATION
  Report Type: Report from Study
  Country: None (occurrence: PL)
  Receive Date: 20151115
  Receipt Date: 20151115
  Transmission Date: 20160304
  Serious: Yes (Death, Disabling)
  Sender: FDA-Public Use
  Company Number: PHHO2015PL018863

PATIENT
  Age: 61 Year
  Sex: Female
  Weight: 79 kg

DRUGS (4)
  1. ETOPOSIDE. [Suspect]
     Active Substance: ETOPOSIDE
     Indication: STEM CELL TRANSPLANT
     Dosage: 110 MG, FOR 5 DAYS
     Route: 065
     Dates: start: 20151017
  2. OFATUMUMAB [Suspect]
     Active Substance: OFATUMUMAB
     Indication: STEM CELL TRANSPLANT
     Dosage: 1000 MG, UNK
     Route: 065
     Dates: start: 20151016
  3. CYTARABINE. [Suspect]
     Active Substance: CYTARABINE
     Indication: STEM CELL TRANSPLANT
     Dosage: 2000 MG, FOR 2 DAYS
     Route: 065
     Dates: start: 20151017
  4. IFOSFAMIDE. [Suspect]
     Active Substance: IFOSFAMIDE
     Indication: STEM CELL TRANSPLANT
     Dosage: 1800 MG, FOR 5 DAYS
     Route: 065
     Dates: start: 20151017

REACTIONS (1)
  - Acute respiratory failure [Fatal]

NARRATIVE: CASE EVENT DATE: 20151025
